FAERS Safety Report 8327525-0 (Version None)
Quarter: 2012Q2

REPORT INFORMATION
  Report Type: 
  Country: None (occurrence: None)
  Receive Date: 20120502
  Receipt Date: 20120419
  Transmission Date: 20120825
  Serious: No
  Sender: FDA-Public Use
  Company Number: US-BAYER-2012-039528

PATIENT
  Age: 79 Year
  Sex: Female
  Weight: 61 kg

DRUGS (5)
  1. PRAVASTATIN [Concomitant]
  2. ASPIRIN [Concomitant]
     Indication: ISCHAEMIC HEART DISEASE PROPHYLAXIS
     Route: 048
  3. NAPROXEN (ALEVE) [Concomitant]
     Dosage: 1 U, UNK
     Route: 048
  4. NAPROXEN SODIUM [Suspect]
     Dosage: 1 U, QOD
     Route: 048
     Dates: start: 20120405
  5. SYNTHROID [Concomitant]

REACTIONS (1)
  - NO ADVERSE EVENT [None]
